FAERS Safety Report 15781621 (Version 1)
Quarter: 2019Q1

REPORT INFORMATION
  Report Type: Spontaneous
  Country: US (occurrence: US)
  Receive Date: 20190102
  Receipt Date: 20190102
  Transmission Date: 20190417
  Serious: Yes (Other)
  Sender: FDA-Public Use
  Company Number: US-ELI_LILLY_AND_COMPANY-US201812010820

PATIENT
  Sex: Female

DRUGS (3)
  1. FORTEO [Suspect]
     Active Substance: TERIPARATIDE
     Indication: PRODUCT USED FOR UNKNOWN INDICATION
     Dosage: UNK, UNKNOWN
     Route: 065
  2. WARFARIN [Concomitant]
     Active Substance: WARFARIN
     Indication: PRODUCT USED FOR UNKNOWN INDICATION
     Dosage: UNK UNK, UNKNOWN
     Route: 065
  3. PREDNISONE. [Concomitant]
     Active Substance: PREDNISONE
     Indication: PRODUCT USED FOR UNKNOWN INDICATION
     Dosage: 10 MG, UNKNOWN
     Route: 065

REACTIONS (17)
  - Bone disorder [Unknown]
  - Wrong technique in product usage process [Unknown]
  - Tooth loss [Unknown]
  - Behcet^s syndrome [Unknown]
  - Incorrect product administration duration [Unknown]
  - Contusion [Unknown]
  - Arteriosclerosis [Unknown]
  - Upper limb fracture [Unknown]
  - Meningitis [Unknown]
  - Joint dislocation [Unknown]
  - Osteoporosis [Unknown]
  - Myalgia [Unknown]
  - Seizure [Unknown]
  - Calcinosis [Unknown]
  - Drug effect decreased [Unknown]
  - Compression fracture [Unknown]
  - Adrenal disorder [Unknown]
